FAERS Safety Report 24689789 (Version 2)
Quarter: 2024Q4

REPORT INFORMATION
  Report Type: Spontaneous
  Country: NL (occurrence: NL)
  Receive Date: 20241203
  Receipt Date: 20241213
  Transmission Date: 20250114
  Serious: Yes (Other)
  Sender: TEVA
  Company Number: None

PATIENT
  Age: 53 Year
  Sex: Female
  Weight: 98 kg

DRUGS (1)
  1. IMATINIB [Suspect]
     Active Substance: IMATINIB
     Indication: Gastrointestinal stromal tumour
     Dosage: 1 PIECE PER DAY, BRAND NAME NOT SPECIFIED
     Route: 048
     Dates: start: 20211210, end: 20220217

REACTIONS (1)
  - Pneumonitis [Recovered/Resolved]
